FAERS Safety Report 9520428 (Version 1)
Quarter: 2013Q3

REPORT INFORMATION
  Report Type: Report from Study
  Country: KR (occurrence: KR)
  Receive Date: 20130912
  Receipt Date: 20130912
  Transmission Date: 20140515
  Serious: No
  Sender: FDA-Public Use
  Company Number: PHHY2013KR093130

PATIENT
  Age: 61 Year
  Sex: Female

DRUGS (6)
  1. SOM230 [Suspect]
     Indication: CUSHING^S SYNDROME
  2. IBANDRONATE SODIUM [Concomitant]
     Indication: OSTEOPOROSIS
  3. CO-DIOVAN [Concomitant]
     Indication: HYPERTENSION
  4. MYPRODOL [Concomitant]
     Indication: CONTUSION
  5. EPERISONE HYDROCHLORIDE [Concomitant]
     Indication: CONTUSION
  6. ITOPRIDE HYDROCHLORIDE [Concomitant]
     Indication: CONTUSION

REACTIONS (5)
  - Pollakiuria [Unknown]
  - Hyperglycaemia [Unknown]
  - Dry eye [Unknown]
  - Skin plaque [Unknown]
  - Lichenification [Unknown]
